FAERS Safety Report 6651013-0 (Version None)
Quarter: 2010Q1

REPORT INFORMATION
  Report Type: 
  Country: None (occurrence: None)
  Receive Date: 20100322
  Receipt Date: 20100308
  Transmission Date: 20100710
  Serious: Yes (Hospitalization)
  Sender: FDA-Public Use
  Company Number: LEO-2010-00111

PATIENT
  Age: 77 Year
  Sex: Female

DRUGS (6)
  1. INNOHEP [Suspect]
     Indication: VENOUS THROMBOSIS
     Dosage: SUBCUTANEOUS
     Route: 058
     Dates: start: 20090924, end: 20091005
  2. CORDARONE [Suspect]
     Indication: CARDIAC DISORDER
     Dosage: PER ORAL
     Route: 048
     Dates: start: 20090924, end: 20091002
  3. PREVISCAN (FLUIDIONE) [Suspect]
     Indication: MYOCARDIAL ISCHAEMIA
     Dosage: PER ORAL
     Route: 048
     Dates: start: 20090924, end: 20091005
  4. BISOPROLOL FUMARATE [Suspect]
     Indication: CARDIAC DISORDER
     Dosage: PER ORAL
     Route: 048
     Dates: start: 20090924, end: 20091002
  5. FLECAINIDE ACETATE [Suspect]
     Indication: CARDIAC DISORDER
     Dosage: PER ORAL
     Route: 048
     Dates: start: 20091002, end: 20091005
  6. LOVENOX [Concomitant]

REACTIONS (5)
  - ABDOMINAL PAIN UPPER [None]
  - HYPERSENSITIVITY [None]
  - NAUSEA [None]
  - TOXIC SKIN ERUPTION [None]
  - VOMITING [None]
